FAERS Safety Report 9929893 (Version 4)
Quarter: 2014Q2

REPORT INFORMATION
  Report Type: Spontaneous
  Country: JP (occurrence: JP)
  Receive Date: 20140227
  Receipt Date: 20140408
  Transmission Date: 20141212
  Serious: Yes (Hospitalization, Other)
  Sender: FDA-Public Use
  Company Number: JP-ELI_LILLY_AND_COMPANY-JP201402007891

PATIENT
  Age: 10 Year
  Sex: Male
  Weight: 25.8 kg

DRUGS (2)
  1. HUMATROPE [Suspect]
     Indication: GROWTH HORMONE DEFICIENCY
     Dosage: UNK
     Route: 058
     Dates: start: 200909, end: 20140212
  2. LOCOID [Concomitant]
     Indication: DERMATITIS ATOPIC

REACTIONS (2)
  - Appendicitis [Unknown]
  - Carcinoid tumour of the appendix [Unknown]
